FAERS Safety Report 7677704-0 (Version None)
Quarter: 2011Q3

REPORT INFORMATION
  Report Type: 
  Country: None (occurrence: None)
  Receive Date: 20110811
  Receipt Date: 20110804
  Transmission Date: 20111222
  Serious: Yes (Other)
  Sender: FDA-Public Use
  Company Number: PHHY2011CA70656

PATIENT
  Sex: Female

DRUGS (1)
  1. ZOLEDRONOC ACID [Suspect]
     Indication: OSTEOPOROSIS
     Dosage: UNK UKN, UNK
     Route: 042
     Dates: start: 20110725

REACTIONS (12)
  - OEDEMA PERIPHERAL [None]
  - JOINT SWELLING [None]
  - INSOMNIA [None]
  - CHEST DISCOMFORT [None]
  - NAUSEA [None]
  - ARTHRALGIA [None]
  - HEADACHE [None]
  - FATIGUE [None]
  - TREMOR [None]
  - CHEST PAIN [None]
  - CHILLS [None]
  - DYSPNOEA [None]
